FAERS Safety Report 7281774-1 (Version None)
Quarter: 2011Q1

REPORT INFORMATION
  Report Type: 
  Country: None (occurrence: None)
  Receive Date: 20110208
  Receipt Date: 20100422
  Transmission Date: 20110831
  Serious: No
  Sender: FDA-Public Use
  Company Number: US-PFIZER INC-2010025091

PATIENT
  Sex: Male
  Weight: 112.5 kg

DRUGS (10)
  1. VICODIN [Concomitant]
     Dosage: UNK, AS NEEDED
  2. SUTENT [Suspect]
     Indication: RENAL CELL CARCINOMA
     Dosage: 50 MG, 1X/DAY
     Dates: start: 20091101
  3. LASIX [Concomitant]
     Dosage: 20 MG, 1X/DAY
  4. GABAPENTIN [Concomitant]
     Dosage: 100 MG, 3X/DAY
  5. FLONASE [Concomitant]
     Dosage: UNK
  6. OMEPRAZOLE [Concomitant]
     Dosage: 20 MG, 2X/DAY
  7. PREDNISONE [Concomitant]
     Dosage: 15 MG, 1X/DAY
  8. SYMBICORT [Concomitant]
     Dosage: UNK
  9. LISINOPRIL [Concomitant]
     Dosage: 10 MG, 1X/DAY
  10. ALBUTEROL [Concomitant]
     Dosage: UNK

REACTIONS (2)
  - ILL-DEFINED DISORDER [None]
  - ERECTILE DYSFUNCTION [None]
